FAERS Safety Report 12666182 (Version 1)
Quarter: 2016Q3

REPORT INFORMATION
  Report Type: Spontaneous
  Country: US (occurrence: US)
  Receive Date: 20160818
  Receipt Date: 20160818
  Transmission Date: 20161109
  Serious: No
  Sender: FDA-Public Use
  Company Number: US-JAZZ-2016-US-005889

PATIENT
  Sex: Female

DRUGS (29)
  1. EFFEXOR [Concomitant]
     Active Substance: VENLAFAXINE HYDROCHLORIDE
  2. FEXOFENADINE HCL [Concomitant]
     Active Substance: FEXOFENADINE HYDROCHLORIDE
  3. RITALIN [Concomitant]
     Active Substance: METHYLPHENIDATE HYDROCHLORIDE
  4. MUCINEX D [Concomitant]
     Active Substance: GUAIFENESIN\PSEUDOEPHEDRINE HYDROCHLORIDE
  5. PROVIGIL [Concomitant]
     Active Substance: MODAFINIL
  6. WELLBUTRIN [Concomitant]
     Active Substance: BUPROPION HYDROCHLORIDE
  7. XANAX [Concomitant]
     Active Substance: ALPRAZOLAM
  8. XYREM [Suspect]
     Active Substance: SODIUM OXYBATE
     Dosage: 3 G, BID
     Route: 048
     Dates: start: 201412
  9. FLUTICASONE PROPIONATE. [Concomitant]
     Active Substance: FLUTICASONE PROPIONATE
  10. VENTOLIN HFA [Concomitant]
     Active Substance: ALBUTEROL SULFATE
  11. SEREVENT DISKUS [Concomitant]
     Active Substance: SALMETEROL XINAFOATE
  12. AMITRIPTYLINE HCL [Concomitant]
     Active Substance: AMITRIPTYLINE
  13. OCELLA [Concomitant]
     Active Substance: DROSPIRENONE\ETHINYL ESTRADIOL
  14. SINGULAIR [Concomitant]
     Active Substance: MONTELUKAST SODIUM
  15. XOPENEX HFA [Concomitant]
     Active Substance: LEVALBUTEROL TARTRATE
  16. BERBERINE [Concomitant]
     Active Substance: BERBERINE
  17. ELIDEL [Concomitant]
     Active Substance: PIMECROLIMUS
  18. XYREM [Suspect]
     Active Substance: SODIUM OXYBATE
     Indication: NARCOLEPSY
     Dosage: 2.25 G, BID
     Route: 048
     Dates: start: 201407, end: 201410
  19. MELATONIN [Concomitant]
     Active Substance: MELATONIN
  20. VITAMIN D3 [Concomitant]
     Active Substance: CHOLECALCIFEROL
  21. MIRENA [Concomitant]
     Active Substance: LEVONORGESTREL
  22. DANAZOL. [Concomitant]
     Active Substance: DANAZOL
  23. PERCOCET [Concomitant]
     Active Substance: ACETAMINOPHEN\OXYCODONE HYDROCHLORIDE
  24. XYREM [Suspect]
     Active Substance: SODIUM OXYBATE
     Indication: CATAPLEXY
     Dosage: 2.75 G, BID
     Route: 048
     Dates: start: 201410, end: 201412
  25. OMEPRAZOLE. [Concomitant]
     Active Substance: OMEPRAZOLE
  26. BUPROPION HCL [Concomitant]
     Active Substance: BUPROPION HYDROCHLORIDE
  27. CONCERTA [Concomitant]
     Active Substance: METHYLPHENIDATE HYDROCHLORIDE
  28. DHEA [Concomitant]
     Active Substance: PRASTERONE
  29. FISH OIL [Concomitant]
     Active Substance: FISH OIL

REACTIONS (2)
  - Feeling abnormal [Unknown]
  - Asthma [Not Recovered/Not Resolved]
